FAERS Safety Report 10228239 (Version 6)
Quarter: 2014Q3

REPORT INFORMATION
  Report Type: Spontaneous
  Country: US (occurrence: US)
  Receive Date: 20140610
  Receipt Date: 20140721
  Transmission Date: 20150326
  Serious: Yes (Hospitalization, Other)
  Sender: FDA-Public Use
  Company Number: US-TEVA-486161USA

PATIENT
  Age: 76 Year
  Sex: Male

DRUGS (17)
  1. SIMVASTATIN. [Concomitant]
     Active Substance: SIMVASTATIN
  2. AMITRIPTYLINE [Concomitant]
     Active Substance: AMITRIPTYLINE
  3. FUROSEMIDE. [Concomitant]
     Active Substance: FUROSEMIDE
  4. HYDROMORPHONE HYDROCHLORIDE. [Concomitant]
     Active Substance: HYDROMORPHONE HYDROCHLORIDE
  5. WARFARIN [Suspect]
     Active Substance: WARFARIN
     Indication: THROMBOSIS PROPHYLAXIS
     Dosage: 3 MILLIGRAM DAILY;
     Route: 048
     Dates: start: 2013
  6. INSULIN [Concomitant]
     Active Substance: INSULIN NOS
     Indication: DIABETES MELLITUS
  7. MORNIFLUMATE [Concomitant]
     Active Substance: MORNIFLUMATE
  8. GLIBENCLAMIDE [Concomitant]
     Active Substance: GLYBURIDE
     Indication: DIABETES MELLITUS
  9. LOSARTAN POTASSIUM. [Concomitant]
     Active Substance: LOSARTAN POTASSIUM
     Indication: DIABETES MELLITUS
  10. CLOPIDOGREL [Concomitant]
     Active Substance: CLOPIDOGREL BISULFATE
  11. LEVOTHYROXINE SODIUM. [Concomitant]
     Active Substance: LEVOTHYROXINE SODIUM
  12. WARFARIN [Suspect]
     Active Substance: WARFARIN
     Indication: PULMONARY EMBOLISM
  13. OXYCODONE [Concomitant]
     Active Substance: OXYCODONE
  14. RANITIDINE [Concomitant]
     Active Substance: RANITIDINE\RANITIDINE HYDROCHLORIDE
  15. OMEPRAZOLE. [Concomitant]
     Active Substance: OMEPRAZOLE
  16. METOPROLOL [Concomitant]
     Active Substance: METOPROLOL
  17. ZOLPIDEM TARTRATE. [Concomitant]
     Active Substance: ZOLPIDEM TARTRATE

REACTIONS (26)
  - Haemorrhage [Unknown]
  - Pain [Unknown]
  - Haematoma [Unknown]
  - Skin disorder [Unknown]
  - Mental disorder [Unknown]
  - Headache [Unknown]
  - Anaemia [Unknown]
  - Renal tubular necrosis [Unknown]
  - Bladder obstruction [Recovering/Resolving]
  - Feeling abnormal [Unknown]
  - Coagulopathy [Unknown]
  - Renal failure acute [Unknown]
  - Hypotension [Unknown]
  - Diabetes mellitus [Unknown]
  - Phantom pain [Unknown]
  - Myocardial infarction [Recovered/Resolved]
  - Peripheral swelling [Unknown]
  - Ventricular tachycardia [Unknown]
  - Renal disorder [Unknown]
  - Skin wrinkling [Unknown]
  - Diarrhoea [Unknown]
  - Pain in extremity [Unknown]
  - Contusion [Recovered/Resolved]
  - Cerebrovascular accident [Unknown]
  - Skin discolouration [Unknown]
  - Neck pain [Unknown]

NARRATIVE: CASE EVENT DATE: 2014
